FAERS Safety Report 13055762 (Version 6)
Quarter: 2017Q3

REPORT INFORMATION
  Report Type: Spontaneous
  Country: US (occurrence: US)
  Receive Date: 20161222
  Receipt Date: 20170914
  Transmission Date: 20171127
  Serious: Yes (Other)
  Sender: FDA-Public Use
  Company Number: US-TEVA-721554USA

PATIENT
  Sex: Male

DRUGS (1)
  1. INDOMETACIN [Suspect]
     Active Substance: INDOMETHACIN
     Route: 065
     Dates: start: 201309, end: 201310

REACTIONS (17)
  - Weight decreased [Unknown]
  - Loss of consciousness [Recovered/Resolved]
  - Feeling abnormal [Not Recovered/Not Resolved]
  - Economic problem [Unknown]
  - Asthenia [Not Recovered/Not Resolved]
  - Malabsorption [Not Recovered/Not Resolved]
  - Gingival bleeding [Unknown]
  - Unhealthy diet [Unknown]
  - General physical condition abnormal [Unknown]
  - Impaired work ability [Not Recovered/Not Resolved]
  - Feeding disorder [Unknown]
  - Gastrointestinal disorder [Not Recovered/Not Resolved]
  - Immune system disorder [Unknown]
  - Coeliac disease [Unknown]
  - Apparent death [Recovered/Resolved]
  - Malaise [Not Recovered/Not Resolved]
  - Adverse event [Not Recovered/Not Resolved]

NARRATIVE: CASE EVENT DATE: 2014
